FAERS Safety Report 8575426-5 (Version None)
Quarter: 2012Q2

REPORT INFORMATION
  Report Type: 
  Country: None (occurrence: None)
  Receive Date: 20120423
  Receipt Date: 20091106
  Transmission Date: 20120825
  Serious: Yes (Other)
  Sender: FDA-Public Use
  Company Number: PHEH2009US07579

PATIENT
  Age: 74 Year
  Sex: Female
  Weight: 66.8 kg

DRUGS (12)
  1. NEXIUM [Concomitant]
  2. DIOVAN [Concomitant]
  3. ATIVAN [Concomitant]
  4. LIPITOR [Concomitant]
  5. COREG [Concomitant]
  6. AMITRIPTYLINE HCL [Concomitant]
  7. LEVOTHYROXINE SODIUM [Concomitant]
  8. EXJADE [Suspect]
     Indication: ANAEMIA OF CHRONIC DISEASE
     Dosage: 500 MG, BID, ORAL
     Route: 048
     Dates: start: 20090611, end: 20090812
  9. METFORMIN HYDROCHLORIDE [Concomitant]
  10. POTASSIUM [Concomitant]
  11. LASIX [Concomitant]
  12. GLYBURIDE [Concomitant]

REACTIONS (7)
  - ABDOMINAL PAIN UPPER [None]
  - ASPARTATE AMINOTRANSFERASE INCREASED [None]
  - ALANINE AMINOTRANSFERASE INCREASED [None]
  - BLOOD ALKALINE PHOSPHATASE INCREASED [None]
  - DIARRHOEA [None]
  - LIVER DISORDER [None]
  - HAEMOGLOBIN DECREASED [None]
